FAERS Safety Report 9350010 (Version 1)
Quarter: 2013Q2

REPORT INFORMATION
  Report Type: Report from Study
  Country: NL (occurrence: NL)
  Receive Date: 20130614
  Receipt Date: 20130614
  Transmission Date: 20140414
  Serious: Yes (Other)
  Sender: FDA-Public Use
  Company Number: NL-B.I. PHARMACEUTICALS,INC./RIDGEFIELD-2013-NL-00436NL

PATIENT
  Age: 82 Year
  Sex: Female

DRUGS (8)
  1. PRADAXA [Suspect]
     Indication: ATRIAL FIBRILLATION
     Dosage: 220 MG
     Dates: start: 2012, end: 20130524
  2. PRADAXA [Suspect]
     Dosage: 300 MG
     Dates: start: 20130524
  3. BUSCOZOL [Suspect]
     Dosage: 20 MG
  4. METFORMINE [Concomitant]
     Dosage: 1000 MG
  5. PRAVASTATINE [Concomitant]
     Dosage: 20 MG
  6. ZOLPIDEM [Concomitant]
     Dosage: 10 MG
  7. LOSARTAN [Concomitant]
     Dosage: 50 MG
  8. FUROSEMIDE [Concomitant]
     Dosage: 20 MG

REACTIONS (1)
  - Transient ischaemic attack [Recovered/Resolved]
